FAERS Safety Report 9382332 (Version 3)
Quarter: 2013Q3

REPORT INFORMATION
  Report Type: Spontaneous
  Country: JP (occurrence: JP)
  Receive Date: 20130703
  Receipt Date: 20130920
  Transmission Date: 20140515
  Serious: Yes (Other)
  Sender: FDA-Public Use
  Company Number: JP-PFIZER INC-2013196862

PATIENT
  Age: 84 Year
  Sex: 0

DRUGS (2)
  1. CELECOX [Suspect]
     Dosage: 200 MG, DAILY
     Route: 048
  2. LYRICA [Suspect]
     Dosage: UNK
     Route: 048

REACTIONS (6)
  - Blood urea increased [Recovered/Resolved]
  - Oedema [Recovered/Resolved]
  - Vasodilatation [Recovered/Resolved]
  - Cardiothoracic ratio increased [Recovered/Resolved]
  - Cardiac failure [Recovered/Resolved]
  - Renal impairment [Recovered/Resolved]
